FAERS Safety Report 6620326-0 (Version None)
Quarter: 2010Q1

REPORT INFORMATION
  Report Type: 
  Country: None (occurrence: None)
  Receive Date: 20100309
  Receipt Date: 20100225
  Transmission Date: 20100710
  Serious: Yes (Other)
  Sender: FDA-Public Use
  Company Number: ES-PFIZER INC-2008071289

PATIENT
  Age: 67 Year
  Sex: Female
  Weight: 50 kg

DRUGS (9)
  1. BLINDED *NO SUBJECT DRUG [Suspect]
     Indication: COLORECTAL CANCER
     Dosage: 37.5 MG, 1X/DAY
     Route: 048
     Dates: start: 20071113, end: 20080818
  2. BLINDED *PLACEBO [Suspect]
     Indication: COLORECTAL CANCER
     Dosage: 37.5 MG, 1X/DAY
     Route: 048
     Dates: start: 20071113, end: 20080818
  3. BLINDED SUNITINIB MALATE [Suspect]
     Indication: COLORECTAL CANCER
     Dosage: 37.5 MG, 1X/DAY
     Route: 048
     Dates: start: 20071113, end: 20080818
  4. IRINOTECAN HCL [Suspect]
     Indication: COLORECTAL CANCER
     Dosage: 270 MG, EVERY 2 WEEKS
     Route: 042
     Dates: start: 20071113, end: 20080722
  5. FLUOROURACIL [Suspect]
     Indication: COLORECTAL CANCER
     Dosage: 600 MG, EVERY 2 WEEKS
     Route: 040
     Dates: start: 20071113, end: 20080724
  6. FLUOROURACIL [Suspect]
     Dosage: 3600 MG, EVERY 2 WEEKS
     Route: 041
     Dates: start: 20071112, end: 20080724
  7. CALCIUM FOLINATE [Suspect]
     Indication: COLORECTAL CANCER
     Dosage: 600 MG, EVERY 2 WEEKS
     Route: 042
     Dates: start: 20071113, end: 20080722
  8. DEXKETOPROFEN [Concomitant]
     Indication: PAIN PROPHYLAXIS
     Dates: start: 20080715
  9. OMEPRAZOLE [Concomitant]
     Indication: PROPHYLAXIS
     Dates: start: 20080715

REACTIONS (1)
  - HYPOTHYROIDISM [None]
